FAERS Safety Report 4297019-0 (Version None)
Quarter: 2004Q1

REPORT INFORMATION
  Report Type: 
  Country: None (occurrence: None)
  Receive Date: 20040213
  Receipt Date: 20040206
  Transmission Date: 20041129
  Serious: No
  Sender: FDA-Public Use
  Company Number: 03P-163-0244795-00

PATIENT
  Age: 66 Year
  Sex: Male

DRUGS (4)
  1. HYTRIN [Suspect]
     Indication: BENIGN PROSTATIC HYPERPLASIA
     Dosage: 10 MG
     Dates: start: 20031203
  2. VARDENAFIL HYDROCHLORIDE [Suspect]
     Indication: ERECTILE DYSFUNCTION
     Dosage: 10 MG, PER ORAL
     Route: 048
     Dates: start: 20031203, end: 20031203
  3. OMEPRAZOLE [Suspect]
  4. SILDENAFIL CITRATE [Concomitant]

REACTIONS (6)
  - BLOOD PRESSURE DECREASED [None]
  - CHILLS [None]
  - CIRCULATORY COLLAPSE [None]
  - HYPERHIDROSIS [None]
  - HYPERSENSITIVITY [None]
  - LOSS OF CONSCIOUSNESS [None]
